FAERS Safety Report 8892047 (Version 1)
Quarter: 2012Q4

REPORT INFORMATION
  Report Type: 
  Country: US (occurrence: US)
  Receive Date: 20121107
  Receipt Date: 20121107
  Transmission Date: 20130627
  Serious: No
  Sender: FDA-Public Use
  Company Number: US-AMGEN-USASP2011055504

PATIENT
  Age: 90 Year
  Sex: Female

DRUGS (1)
  1. ENBREL [Suspect]
     Indication: PSORIATIC ARTHROPATHY
     Dosage: 50 mg, qwk
     Dates: start: 20110817, end: 20110928

REACTIONS (5)
  - Asthenia [Not Recovered/Not Resolved]
  - Fall [Unknown]
  - Head injury [Unknown]
  - Local swelling [Unknown]
  - Nasopharyngitis [Not Recovered/Not Resolved]
